FAERS Safety Report 9994893 (Version 1)
Quarter: 2014Q1

REPORT INFORMATION
  Report Type: Spontaneous
  Country: US (occurrence: US)
  Receive Date: 20140311
  Receipt Date: 20140311
  Transmission Date: 20141002
  Serious: Yes (Hospitalization)
  Sender: FDA-Public Use
  Company Number: US-BAYER-2014-034391

PATIENT
  Age: 19 Year
  Sex: Female
  Weight: 54.6 kg

DRUGS (6)
  1. YAZ [Suspect]
  2. OXYCODONE [Concomitant]
  3. ZOFRAN [Concomitant]
  4. PERCOCET [Concomitant]
     Indication: PAIN
  5. IBUPROFEN [Concomitant]
  6. ZYRTEC [Concomitant]

REACTIONS (1)
  - Transverse sinus thrombosis [None]
